FAERS Safety Report 25391563 (Version 1)
Quarter: 2025Q2

REPORT INFORMATION
  Report Type: Spontaneous
  Country: CN (occurrence: CN)
  Receive Date: 20250603
  Receipt Date: 20250603
  Transmission Date: 20250717
  Serious: Yes (Other)
  Sender: MERCK SHARP & DOHME LLC
  Company Number: CN-009507513-2289859

PATIENT
  Age: 66 Year
  Sex: Male
  Weight: 51.6 kg

DRUGS (3)
  1. NOXAFIL [Suspect]
     Active Substance: POSACONAZOLE
     Indication: Myelodysplastic syndrome
     Dosage: 300MG, QD, FORMULATION ENTERIC-COATED TABLETS
     Route: 048
     Dates: start: 20250507, end: 20250512
  2. CYCLOSPORINE [Suspect]
     Active Substance: CYCLOSPORINE
     Indication: Myelodysplastic syndrome
     Dosage: 40MG BID
     Route: 041
     Dates: start: 20250508, end: 20250512
  3. CASPOFUNGIN [Suspect]
     Active Substance: CASPOFUNGIN
     Indication: Prophylaxis
     Route: 065
     Dates: start: 20250512

REACTIONS (7)
  - Mental disorder [Recovering/Resolving]
  - Disorganised speech [Recovering/Resolving]
  - Persecutory delusion [Recovering/Resolving]
  - Product use in unapproved indication [Unknown]
  - Illusion [Recovering/Resolving]
  - Product use in unapproved indication [Unknown]
  - Agitation [Recovering/Resolving]

NARRATIVE: CASE EVENT DATE: 20250501
